FAERS Safety Report 4603700-3 (Version None)
Quarter: 2005Q1

REPORT INFORMATION
  Report Type: 
  Country: None (occurrence: None)
  Receive Date: 20050310
  Receipt Date: 20050225
  Transmission Date: 20050727
  Serious: Yes (Hospitalization)
  Sender: FDA-Public Use
  Company Number: JP-JNJFOC-20050300931

PATIENT
  Sex: Male

DRUGS (6)
  1. ITRIZOLE [Suspect]
     Indication: ONYCHOMYCOSIS
     Dosage: 3 COURSES TAKEN ON UNKNOWN DATES.
     Route: 049
  2. CARBIDOPA AND LEVODOPA [Concomitant]
     Route: 049
     Dates: start: 20030904
  3. CARBIDOPA AND LEVODOPA [Concomitant]
     Indication: PARKINSON'S DISEASE
     Route: 049
     Dates: start: 20030904
  4. CABERGOLINE [Concomitant]
     Indication: PARKINSON'S DISEASE
     Route: 049
     Dates: start: 20031009
  5. AMOROLFINE HYDROCHLORIDE [Concomitant]
     Indication: NAIL TINEA
     Route: 061
     Dates: start: 20040722
  6. RILMAZAFONE HYDROCHLORIDE [Concomitant]
     Indication: PARKINSON'S DISEASE
     Route: 049
     Dates: start: 20040909

REACTIONS (2)
  - FALL [None]
  - FEMORAL NECK FRACTURE [None]
